FAERS Safety Report 8339878-8 (Version None)
Quarter: 2012Q2

REPORT INFORMATION
  Report Type: 
  Country: None (occurrence: None)
  Receive Date: 20120507
  Receipt Date: 20120424
  Transmission Date: 20120825
  Serious: Yes (Hospitalization)
  Sender: FDA-Public Use
  Company Number: JP-PFIZER INC-2012106657

PATIENT
  Sex: Female

DRUGS (2)
  1. CORTICOSTEROID NOS [Concomitant]
     Indication: MICROSCOPIC POLYANGIITIS
  2. ATORVASTATIN CALCIUM [Suspect]
     Dosage: UNK
     Route: 048

REACTIONS (1)
  - MICROSCOPIC POLYANGIITIS [None]
